FAERS Safety Report 8202592-3 (Version None)
Quarter: 2012Q1

REPORT INFORMATION
  Report Type: 
  Country: None (occurrence: None)
  Receive Date: 20120227
  Receipt Date: 20120131
  Transmission Date: 20120608
  Serious: Yes (Hospitalization)
  Sender: FDA-Public Use
  Company Number: 340966

PATIENT
  Age: 74 Year
  Sex: Male
  Weight: 108.4 kg

DRUGS (3)
  1. LANTUS [Concomitant]
  2. STARLIX [Concomitant]
  3. VICTOZA [Suspect]
     Indication: PRODUCT USED FOR UNKNOWN INDICATION
     Dosage: 1.8 MG, QD, SUBCUTANEOUS
     Route: 058
     Dates: start: 20110317, end: 20111014

REACTIONS (1)
  - PANCREATITIS ACUTE [None]
